FAERS Safety Report 11995297 (Version 5)
Quarter: 2017Q3

REPORT INFORMATION
  Report Type: Spontaneous
  Country: US (occurrence: US)
  Receive Date: 20160203
  Receipt Date: 20170718
  Transmission Date: 20171127
  Serious: Yes (Other)
  Sender: FDA-Public Use
  Company Number: US-PFIZER INC-2016051615

PATIENT
  Age: 66 Year
  Sex: Male

DRUGS (1)
  1. SULFAMETHOXAZOLE/TRIMETHOPRIM [Suspect]
     Active Substance: SULFAMETHOXAZOLE\TRIMETHOPRIM
     Indication: PNEUMOCYSTIS JIROVECII PNEUMONIA
     Dosage: DOUBLE STRENGTH (160/800 MG) 2 TABS EVERY 6 HOURS ,15.6 MG/KG/DAY OF TRIMETHOPRIM
     Route: 048

REACTIONS (3)
  - Myoclonus [Recovered/Resolved]
  - Tremor [None]
  - Asterixis [Recovered/Resolved]
